FAERS Safety Report 4480655-6 (Version None)
Quarter: 2004Q4

REPORT INFORMATION
  Report Type: 
  Country: None (occurrence: None)
  Receive Date: 20041019
  Receipt Date: 20041006
  Transmission Date: 20050328
  Serious: Yes (Other)
  Sender: FDA-Public Use
  Company Number: 2004050748

PATIENT
  Sex: Female

DRUGS (5)
  1. PROCARDIA [Suspect]
     Indication: HYPERTENSION
     Dosage: 90 MG (90 MG, 1 IN 1 D)
  2. NORVASC [Suspect]
     Indication: BLOOD PRESSURE
     Dosage: 10 MG (10 MG, 1 IN 1 D), ORAL
     Route: 048
     Dates: start: 20040101, end: 20040101
  3. CALCIUM ACETATE (CALCIUM ACETATE) [Concomitant]
  4. NEPHROCAPS (FOLIC AICD, VITAMINS NOS) [Concomitant]
  5. ATENOLOL [Concomitant]

REACTIONS (5)
  - ABNORMAL SENSATION IN EYE [None]
  - BLOOD PRESSURE INCREASED [None]
  - EPISTAXIS [None]
  - NASAL DRYNESS [None]
  - RETINAL HAEMORRHAGE [None]
